FAERS Safety Report 25487628 (Version 1)
Quarter: 2025Q2

REPORT INFORMATION
  Report Type: Spontaneous
  Country: IT (occurrence: IT)
  Receive Date: 20250627
  Receipt Date: 20250627
  Transmission Date: 20250716
  Serious: Yes (Congenital Anomaly, Other)
  Sender: UCB
  Company Number: None

PATIENT
  Sex: Male

DRUGS (3)
  1. VIMPAT [Suspect]
     Active Substance: LACOSAMIDE
     Indication: Epilepsy
     Route: 064
     Dates: start: 2019, end: 2022
  2. BRIVARACETAM [Concomitant]
     Active Substance: BRIVARACETAM
     Indication: Epilepsy
     Route: 048
     Dates: start: 2019, end: 2022
  3. LAMICTAL [Concomitant]
     Active Substance: LAMOTRIGINE
     Indication: Epilepsy
     Route: 048
     Dates: start: 20220302

REACTIONS (1)
  - Hypospadias [Recovered/Resolved]

NARRATIVE: CASE EVENT DATE: 20221014
